FAERS Safety Report 13573466 (Version 2)
Quarter: 2017Q2

REPORT INFORMATION
  Report Type: Spontaneous
  Country: JP (occurrence: JP)
  Receive Date: 20170523
  Receipt Date: 20170619
  Transmission Date: 20170830
  Serious: Yes (Death, Other)
  Sender: FDA-Public Use
  Company Number: JP-JNJFOC-20170519962

PATIENT

DRUGS (4)
  1. ORTHO M-21 [Suspect]
     Active Substance: ETHINYL ESTRADIOL\NORETHINDRONE
     Indication: DYSMENORRHOEA
     Route: 064
     Dates: start: 20170518
  2. ORTHO M-21 [Suspect]
     Active Substance: ETHINYL ESTRADIOL\NORETHINDRONE
     Indication: CONTRACEPTION
     Route: 064
     Dates: start: 20170518
  3. ORTHO M-21 [Suspect]
     Active Substance: ETHINYL ESTRADIOL\NORETHINDRONE
     Indication: DYSMENORRHOEA
     Route: 064
     Dates: start: 201502
  4. ORTHO M-21 [Suspect]
     Active Substance: ETHINYL ESTRADIOL\NORETHINDRONE
     Indication: CONTRACEPTION
     Route: 064
     Dates: start: 201502

REACTIONS (2)
  - Foetal exposure during pregnancy [Fatal]
  - Apnoea [Fatal]
